FAERS Safety Report 4545938-X (Version None)
Quarter: 2005Q1

REPORT INFORMATION
  Report Type: 
  Country: None (occurrence: None)
  Receive Date: 20050103
  Receipt Date: 20041222
  Transmission Date: 20050727
  Serious: Yes (Other)
  Sender: FDA-Public Use
  Company Number: 2004118174

PATIENT
  Age: 30 Year
  Sex: Female
  Weight: 53.5244 kg

DRUGS (4)
  1. DEPO-PROVERA [Suspect]
     Indication: CONTRACEPTION
     Dosage: SEE IMAGE
     Route: 030
     Dates: start: 20030901, end: 20030901
  2. DEPO-PROVERA [Suspect]
     Indication: CONTRACEPTION
     Dosage: SEE IMAGE
     Route: 030
     Dates: start: 20041201, end: 20041201
  3. TOCOPHEROL CONCENTRATE CAP [Concomitant]
  4. CALCIUM (CALCIUM) [Concomitant]

REACTIONS (7)
  - ASTHENIA [None]
  - CONCUSSION [None]
  - DIZZINESS [None]
  - HAND FRACTURE [None]
  - HEPATITIS C [None]
  - INJURY [None]
  - OEDEMA PERIPHERAL [None]
